FAERS Safety Report 6959588-9 (Version None)
Quarter: 2010Q3

REPORT INFORMATION
  Report Type: 
  Country: None (occurrence: None)
  Receive Date: 20100825
  Receipt Date: 20100824
  Transmission Date: 20110219
  Serious: Yes (Hospitalization)
  Sender: FDA-Public Use
  Company Number: 2009SP012573

PATIENT
  Age: 78 Year
  Sex: Female
  Weight: 71 kg

DRUGS (6)
  1. TEMODAL [Suspect]
     Indication: CENTRAL NERVOUS SYSTEM LYMPHOMA
     Dosage: 250 MG;QD;PO
     Route: 048
     Dates: start: 20090518, end: 20090522
  2. TEMODAL [Suspect]
     Indication: CENTRAL NERVOUS SYSTEM LYMPHOMA
     Dosage: 250 MG;QD;PO
     Route: 048
     Dates: start: 20090616
  3. METHOTREXATE [Suspect]
     Indication: CENTRAL NERVOUS SYSTEM LYMPHOMA
     Dosage: 5900 MG;QD;IV
     Route: 042
     Dates: start: 20090518, end: 20090518
  4. METHOTREXATE [Suspect]
     Indication: CENTRAL NERVOUS SYSTEM LYMPHOMA
     Dosage: 5900 MG;QD;IV
     Route: 042
     Dates: start: 20090616
  5. SOLU-MEDROL [Suspect]
     Indication: CENTRAL NERVOUS SYSTEM LYMPHOMA
     Dosage: 60 MG;QD;IV
     Route: 042
     Dates: start: 20090518, end: 20090521
  6. SOLU-MEDROL [Suspect]
     Indication: CENTRAL NERVOUS SYSTEM LYMPHOMA
     Dosage: 60 MG;QD;IV
     Route: 042
     Dates: start: 20090616

REACTIONS (3)
  - ESCHERICHIA SEPSIS [None]
  - LEUKOENCEPHALOPATHY [None]
  - STAPHYLOCOCCAL SEPSIS [None]
